FAERS Safety Report 9790323 (Version 3)
Quarter: 2014Q1

REPORT INFORMATION
  Report Type: Spontaneous
  Country: AU (occurrence: AU)
  Receive Date: 20131231
  Receipt Date: 20140109
  Transmission Date: 20141002
  Serious: Yes (Other)
  Sender: FDA-Public Use
  Company Number: AU-009507513-1311AUS005540

PATIENT
  Age: 24 Year
  Sex: Female

DRUGS (2)
  1. IMPLANON [Suspect]
     Indication: CONTRACEPTION
     Dosage: 1 DF, 3 YEARLY
     Route: 059
     Dates: start: 20130822, end: 20131113
  2. IMPLANON [Suspect]
     Dosage: UNK
     Dates: end: 20130321

REACTIONS (4)
  - Abortion spontaneous [Unknown]
  - VIIth nerve paralysis [Unknown]
  - Unintended pregnancy [Unknown]
  - Vaginal haemorrhage [Unknown]
